FAERS Safety Report 5511249-9 (Version None)
Quarter: 2007Q4

REPORT INFORMATION
  Report Type: 
  Country: None (occurrence: None)
  Receive Date: 20071109
  Receipt Date: 20071105
  Transmission Date: 20080405
  Serious: Yes (Other)
  Sender: FDA-Public Use
  Company Number: TR-ROCHE-529794

PATIENT
  Age: 29 Year
  Sex: Female

DRUGS (6)
  1. CEFTRIAXONE [Suspect]
     Indication: DRUG USE FOR UNKNOWN INDICATION
     Route: 065
  2. SULFAMETHOXAZOLE AND TRIMETHOPRIM [Suspect]
     Indication: DRUG USE FOR UNKNOWN INDICATION
     Route: 065
  3. CIPROFLOXACIN [Suspect]
     Indication: DRUG USE FOR UNKNOWN INDICATION
     Route: 065
  4. UNSPECIFIED DRUG [Suspect]
     Indication: DRUG USE FOR UNKNOWN INDICATION
     Dosage: DRUG NAME REPORTED AS METHENAMINE ANHYDROMETHYLATE CITRATE.
     Route: 065
  5. PIROXICAM [Suspect]
     Indication: DRUG USE FOR UNKNOWN INDICATION
     Route: 065
  6. AZITHROMYCIN [Suspect]
     Indication: DRUG USE FOR UNKNOWN INDICATION
     Route: 065

REACTIONS (1)
  - ERYTHEMA MULTIFORME [None]
